FAERS Safety Report 5386244-3 (Version None)
Quarter: 2007Q3

REPORT INFORMATION
  Report Type: 
  Country: None (occurrence: None)
  Receive Date: 20070713
  Receipt Date: 20070705
  Transmission Date: 20080115
  Serious: Yes (Disabling)
  Sender: FDA-Public Use
  Company Number: PHBS2007IT11593

PATIENT
  Age: 62 Year
  Sex: Female

DRUGS (2)
  1. ZOMETA [Suspect]
     Indication: BREAST CANCER
     Dosage: 4 MG/MONTH
     Route: 042
     Dates: start: 19980101, end: 20020101
  2. ZOMETA [Suspect]
     Dosage: 4 MG/MONTH
     Route: 042
     Dates: start: 20020101

REACTIONS (3)
  - OSTEONECROSIS [None]
  - PURULENCE [None]
  - TOOTH EXTRACTION [None]
